FAERS Safety Report 19096343 (Version 1)
Quarter: 2021Q2

REPORT INFORMATION
  Report Type: Other
  Country: JP (occurrence: JP)
  Receive Date: 20210406
  Receipt Date: 20210406
  Transmission Date: 20210717
  Serious: Yes (Death, Other)
  Sender: FDA-Public Use
  Company Number: JP-ROCHE-2803062

PATIENT
  Age: 42 Year
  Sex: Male

DRUGS (6)
  1. VINCRISTINE SULFATE. [Concomitant]
     Active Substance: VINCRISTINE SULFATE
  2. DOXORUBICIN HYDROCHLORIDE. [Concomitant]
     Active Substance: DOXORUBICIN HYDROCHLORIDE
  3. PREDNISOLONE. [Concomitant]
     Active Substance: PREDNISOLONE
  4. RITUXAN [Suspect]
     Active Substance: RITUXIMAB
     Indication: CHRONIC ACTIVE EPSTEIN-BARR VIRUS INFECTION
     Route: 042
  5. CYCLOPHOSPHAMIDE HYDRATE [Concomitant]
     Active Substance: CYCLOPHOSPHAMIDE
  6. AVELUMAB [Concomitant]
     Active Substance: AVELUMAB

REACTIONS (2)
  - Neuroendocrine carcinoma of the skin [Fatal]
  - Bone tuberculosis [Unknown]
